FAERS Safety Report 5129199-9 (Version None)
Quarter: 2006Q4

REPORT INFORMATION
  Report Type: 
  Country: None (occurrence: None)
  Receive Date: 20061012
  Receipt Date: 20060925
  Transmission Date: 20070319
  Serious: Yes (Death, Hospitalization)
  Sender: FDA-Public Use
  Company Number: CIO06012606

PATIENT
  Age: 71 Year
  Sex: Female
  Weight: 63.5 kg

DRUGS (5)
  1. METAMUCIL SUGAR-FREE SOMOOTH TEXTURE, ORANGE FLAVOR (PSYLLIUM HYDROPHI [Suspect]
     Dosage: 1 ONLY, ORAL
     Route: 048
     Dates: start: 20060906, end: 20060906
  2. KLONOPIN [Concomitant]
  3. ZETIA [Concomitant]
  4. LEVOTIROXINA (LEVOTHYROXINE SODIUM) [Concomitant]
  5. ZYPREXA [Concomitant]

REACTIONS (8)
  - CHOKING [None]
  - FALL [None]
  - FOREIGN BODY TRAUMA [None]
  - LOSS OF CONSCIOUSNESS [None]
  - MEDICATION ERROR [None]
  - MYDRIASIS [None]
  - OBSTRUCTIVE AIRWAYS DISORDER [None]
  - RESPIRATORY ARREST [None]
